FAERS Safety Report 16402914 (Version 1)
Quarter: 2019Q2

REPORT INFORMATION
  Report Type: Spontaneous
  Country: US (occurrence: US)
  Receive Date: 20190501
  Receipt Date: 20190501
  Transmission Date: 20190711
  Serious: Yes (Disabling)
  Sender: FDA-Public Use
  Company Number: None

PATIENT
  Age: 57 Year
  Sex: Female
  Weight: 124.28 kg

DRUGS (13)
  1. EXCEDRIN MIGRAINE [Concomitant]
     Active Substance: ACETAMINOPHEN\ASPIRIN\CAFFEINE
  2. AMLODIPINE BESYLATE. [Concomitant]
     Active Substance: AMLODIPINE BESYLATE
  3. GENERIC KEFLEX [Concomitant]
  4. TUMERIC [Concomitant]
     Active Substance: HERBALS\TURMERIC
  5. CALCIUM [Concomitant]
     Active Substance: CALCIUM
  6. ALLERGY MEDICINE [Concomitant]
     Active Substance: DIPHENHYDRAMINE HYDROCHLORIDE
  7. VITAMIN B [Concomitant]
     Active Substance: VITAMIN B
  8. GLUCOSAMINE [Concomitant]
     Active Substance: GLUCOSAMINE
  9. TYLENOL [Concomitant]
     Active Substance: ACETAMINOPHEN
  10. ADVIL [Concomitant]
     Active Substance: IBUPROFEN
  11. CIPROFLOXACIN HCL (GENERIC FOR CIPRO) [Suspect]
     Active Substance: CIPROFLOXACIN HYDROCHLORIDE
     Indication: CELLULITIS
     Dosage: ?          QUANTITY:1 DF DOSAGE FORM;?
     Route: 048
     Dates: start: 20190122, end: 20190124
  12. VITAMIN C [Concomitant]
     Active Substance: ASCORBIC ACID
  13. FIBER [Concomitant]
     Active Substance: PSYLLIUM HUSK

REACTIONS (7)
  - Hypoaesthesia [None]
  - Burning sensation [None]
  - Feeling abnormal [None]
  - Sleep disorder [None]
  - Discomfort [None]
  - Insomnia [None]
  - Palpitations [None]

NARRATIVE: CASE EVENT DATE: 20190123
